FAERS Safety Report 13972739 (Version 3)
Quarter: 2018Q3

REPORT INFORMATION
  Report Type: Spontaneous
  Country: US (occurrence: US)
  Receive Date: 20170915
  Receipt Date: 20180703
  Transmission Date: 20181010
  Serious: No
  Sender: FDA-Public Use
  Company Number: US-GLAXOSMITHKLINE-US2017GSK142766

PATIENT
  Age: 50 Year
  Sex: Female

DRUGS (2)
  1. MEPRON [Suspect]
     Active Substance: ATOVAQUONE
     Indication: BABESIOSIS
     Dosage: 750 MG, BID
     Route: 048
     Dates: start: 2011
  2. LAMICTAL [Suspect]
     Active Substance: LAMOTRIGINE
     Indication: BABESIOSIS
     Dosage: 200 MG, UNK
     Route: 048
     Dates: start: 2012

REACTIONS (9)
  - Intentional underdose [Unknown]
  - Chills [Unknown]
  - Product use in unapproved indication [Unknown]
  - Malaise [Unknown]
  - Headache [Unknown]
  - Drug dose omission [Unknown]
  - Product preparation error [Unknown]
  - Hyperhidrosis [Unknown]
  - Fatigue [Unknown]

NARRATIVE: CASE EVENT DATE: 201709
